FAERS Safety Report 22228497 (Version 1)
Quarter: 2023Q2

REPORT INFORMATION
  Report Type: Spontaneous
  Country: DE (occurrence: DE)
  Receive Date: 20230419
  Receipt Date: 20230419
  Transmission Date: 20230722
  Serious: Yes (Other)
  Sender: FDA-Public Use
  Company Number: DE-ASTELLAS-2023US010669

PATIENT
  Sex: Female

DRUGS (4)
  1. AZACITIDINE [Suspect]
     Active Substance: AZACITIDINE
     Indication: Acute myeloid leukaemia refractory
     Dosage: UNK (UNK UNK, UNKNOWN FREQ)
     Route: 065
  2. AZACITIDINE [Suspect]
     Active Substance: AZACITIDINE
     Indication: Acute myeloid leukaemia recurrent
  3. GILTERITINIB [Suspect]
     Active Substance: GILTERITINIB
     Indication: Acute myeloid leukaemia refractory
     Dosage: UNK (UNK UNK, UNKNOWN FREQ)
     Route: 065
  4. GILTERITINIB [Suspect]
     Active Substance: GILTERITINIB
     Indication: Acute myeloid leukaemia recurrent

REACTIONS (3)
  - Acute myeloid leukaemia recurrent [Recovering/Resolving]
  - Off label use [Recovering/Resolving]
  - Product use issue [Recovering/Resolving]
